FAERS Safety Report 19386135 (Version 4)
Quarter: 2021Q3

REPORT INFORMATION
  Report Type: Report from Study
  Country: US (occurrence: US)
  Receive Date: 20210608
  Receipt Date: 20210914
  Transmission Date: 20211014
  Serious: No
  Sender: FDA-Public Use
  Company Number: NVSC2021US128780

PATIENT
  Age: 62 Year
  Sex: Male

DRUGS (2)
  1. KESIMPTA [Suspect]
     Active Substance: OFATUMUMAB
     Indication: MULTIPLE SCLEROSIS
     Dosage: 20 MG, QW (BENEATH THE SKIN, USUALLY VIA INJECTION)
     Route: 058
     Dates: start: 20210605
  2. KESIMPTA [Suspect]
     Active Substance: OFATUMUMAB
     Dosage: 20 MG, QMO
     Route: 058
     Dates: start: 20210605

REACTIONS (6)
  - Headache [Recovered/Resolved]
  - Headache [Recovered/Resolved]
  - Sluggishness [Recovered/Resolved]
  - Insomnia [Recovered/Resolved]
  - Energy increased [Recovered/Resolved]
  - Fatigue [Recovered/Resolved]

NARRATIVE: CASE EVENT DATE: 20210605
